FAERS Safety Report 25213050 (Version 1)
Quarter: 2025Q2

REPORT INFORMATION
  Report Type: Report from Study
  Country: US (occurrence: US)
  Receive Date: 20250418
  Receipt Date: 20250418
  Transmission Date: 20250716
  Serious: Yes (Hospitalization, Other)
  Sender: GALDERMA
  Company Number: US-GALDERMA-US2025005584

PATIENT

DRUGS (5)
  1. NEMOLIZUMAB [Suspect]
     Active Substance: NEMOLIZUMAB
     Indication: Dermatitis atopic
     Route: 058
  2. ALBUTEROL [Concomitant]
     Active Substance: ALBUTEROL
     Indication: Asthma
  3. RINVOQ [Concomitant]
     Active Substance: UPADACITINIB
     Indication: Product used for unknown indication
  4. EMTRICITABINE [Concomitant]
     Active Substance: EMTRICITABINE
     Indication: Sexually transmitted disease
  5. TENOFOVIR DISOPROXIL FUMARATE [Concomitant]
     Active Substance: TENOFOVIR DISOPROXIL FUMARATE
     Indication: Sexually transmitted disease

REACTIONS (4)
  - Metapneumovirus infection [Recovered/Resolved]
  - Syncope [Recovered/Resolved]
  - Wheezing [Recovered/Resolved]
  - Influenza like illness [Recovered/Resolved]

NARRATIVE: CASE EVENT DATE: 20250101
